FAERS Safety Report 7002604-9 (Version None)
Quarter: 2010Q3

REPORT INFORMATION
  Report Type: 
  Country: None (occurrence: None)
  Receive Date: 20100917
  Receipt Date: 20100917
  Transmission Date: 20110219
  Serious: Yes (Other)
  Sender: FDA-Public Use
  Company Number: None

PATIENT
  Age: 54 Year
  Sex: Male
  Weight: 58.9676 kg

DRUGS (1)
  1. NAC DIAGNOSTIC REAGENT [Suspect]
     Indication: ANTIOXIDANT THERAPY
     Dosage: 1200MG ONCE DAILY ORALLY
     Route: 048
     Dates: start: 20100701, end: 20100820

REACTIONS (2)
  - ASPIRATION [None]
  - GASTROOESOPHAGEAL REFLUX DISEASE [None]
